FAERS Safety Report 16304427 (Version 2)
Quarter: 2020Q2

REPORT INFORMATION
  Report Type: Spontaneous
  Country: FR (occurrence: FR)
  Receive Date: 20190513
  Receipt Date: 20200519
  Transmission Date: 20200713
  Serious: Yes (Life-Threatening, Hospitalization)
  Sender: FDA-Public Use
  Company Number: FR-MYLANLABS-2019M1044637

PATIENT
  Age: 30 Year
  Sex: Female

DRUGS (1)
  1. METOPROLOL. [Suspect]
     Active Substance: METOPROLOL
     Indication: PRODUCT USED FOR UNKNOWN INDICATION
     Dosage: 4 GRAM SUSTAINED RELEASE METOPROLOL
     Route: 048

REACTIONS (7)
  - Hypotension [Recovering/Resolving]
  - Ejection fraction decreased [Recovering/Resolving]
  - Suicide attempt [Recovering/Resolving]
  - False positive investigation result [Unknown]
  - Intentional overdose [Recovering/Resolving]
  - Sinus bradycardia [Recovering/Resolving]
  - Toxicity to various agents [Recovering/Resolving]
